FAERS Safety Report 7920540-8 (Version None)
Quarter: 2011Q4

REPORT INFORMATION
  Report Type: 
  Country: None (occurrence: None)
  Receive Date: 20111117
  Receipt Date: 20111111
  Transmission Date: 20120403
  Serious: Yes (Other)
  Sender: FDA-Public Use
  Company Number: PHHY2011BR87997

PATIENT
  Sex: Female

DRUGS (4)
  1. TRILEPTAL [Suspect]
     Dosage: 0.5 DF, ONCE/SINGLE
     Route: 048
     Dates: start: 20111001
  2. TRILEPTAL [Suspect]
     Indication: ANXIETY
     Dosage: 1 ML DAILY FOR 1 WEEK
     Route: 048
     Dates: start: 20110727
  3. TRILEPTAL [Suspect]
     Dosage: AFTER THE FIRST WEEK INCREASED THE DOSAGE UNTIL 3 ML. IN MORNING, 2 ML IN AFTERNOON AND 4 ML AT NIGH
     Route: 048
     Dates: start: 20111003
  4. TRILEPTAL [Suspect]
     Dosage: INCREASED THE DOSAGE UNTIL 3 ML. IN MORNING, 2 ML IN AFTERNOON AND 4 ML AT NIGH
     Route: 048
     Dates: end: 20110929

REACTIONS (23)
  - NECK PAIN [None]
  - INCORRECT DOSE ADMINISTERED [None]
  - ALANINE AMINOTRANSFERASE INCREASED [None]
  - FEELING ABNORMAL [None]
  - TREMOR [None]
  - PANIC ATTACK [None]
  - BURNING SENSATION [None]
  - ASTHENIA [None]
  - ABDOMINAL DISCOMFORT [None]
  - SALIVARY HYPERSECRETION [None]
  - FEAR [None]
  - ABDOMINAL PAIN UPPER [None]
  - NAUSEA [None]
  - VISUAL IMPAIRMENT [None]
  - ANXIETY [None]
  - PAIN [None]
  - DRUG INTOLERANCE [None]
  - HEADACHE [None]
  - DEPRESSION [None]
  - FEAR OF DEATH [None]
  - EAR PAIN [None]
  - GAIT DISTURBANCE [None]
  - MALAISE [None]
